FAERS Safety Report 24827192 (Version 1)
Quarter: 2025Q1

REPORT INFORMATION
  Report Type: Spontaneous
  Country: US (occurrence: US)
  Receive Date: 20250109
  Receipt Date: 20250109
  Transmission Date: 20250409
  Serious: No
  Sender: SANOFI AVENTIS
  Company Number: US-SA-2025SA006793

PATIENT
  Age: 36 Year

DRUGS (1)
  1. TOUJEO MAX [Suspect]
     Active Substance: INSULIN GLARGINE
     Indication: Blood glucose increased
     Dosage: 160U BID (INFORMATION ON APP), 80U BID (INFORMATION ON RX)
     Route: 058

REACTIONS (1)
  - Off label use [Unknown]
